FAERS Safety Report 4969279-1 (Version None)
Quarter: 2006Q2

REPORT INFORMATION
  Report Type: 
  Country: None (occurrence: None)
  Receive Date: 20060405
  Receipt Date: 20060328
  Transmission Date: 20061013
  Serious: Yes (Other)
  Sender: FDA-Public Use
  Company Number: 2006011506

PATIENT
  Age: 26 Year
  Sex: Male
  Weight: 67.1324 kg

DRUGS (3)
  1. ZOLOFT [Suspect]
     Indication: POST-TRAUMATIC STRESS DISORDER
     Dosage: 150 MG (100 MG, 1 IN 1 D), ORAL
     Route: 048
     Dates: start: 20030101
  2. KLONOPIN [Suspect]
     Indication: ANXIETY
     Dosage: 1 MG (1 MG, AS NECESSARY), ORAL
     Route: 048
     Dates: start: 20050101, end: 20060110
  3. OMEPRAZOLE [Concomitant]

REACTIONS (6)
  - ANXIETY [None]
  - CHILLS [None]
  - CONVULSION [None]
  - MUSCLE TWITCHING [None]
  - SEXUAL DYSFUNCTION [None]
  - TREATMENT NONCOMPLIANCE [None]
